FAERS Safety Report 16845160 (Version 3)
Quarter: 2019Q4

REPORT INFORMATION
  Report Type: Spontaneous
  Country: US (occurrence: US)
  Receive Date: 20190924
  Receipt Date: 20191018
  Transmission Date: 20200122
  Serious: No
  Sender: FDA-Public Use
  Company Number: US-PFIZER INC-2019411266

PATIENT
  Age: 44 Year
  Sex: Male
  Weight: 79 kg

DRUGS (3)
  1. LYRICA [Suspect]
     Active Substance: PREGABALIN
     Indication: POST-TRAUMATIC STRESS DISORDER
  2. LYRICA [Suspect]
     Active Substance: PREGABALIN
     Indication: AFFECTIVE DISORDER
  3. LYRICA [Suspect]
     Active Substance: PREGABALIN
     Indication: ANXIETY
     Dosage: 400 MG, DAILY (1 CAPSULE BY MOUTH IN THE MORNING, 1 CAPSULE AT NOON, AND 2 CAPSULES IN THE EVENING)
     Dates: start: 2019

REACTIONS (3)
  - Off label use [Unknown]
  - Drug effective for unapproved indication [Unknown]
  - Malaise [Unknown]

NARRATIVE: CASE EVENT DATE: 2019
